FAERS Safety Report 19034583 (Version 4)
Quarter: 2023Q2

REPORT INFORMATION
  Report Type: Report from Study
  Country: JP (occurrence: JP)
  Receive Date: 20210320
  Receipt Date: 20230411
  Transmission Date: 20230721
  Serious: Yes (Other)
  Sender: FDA-Public Use
  Company Number: JP-CELLTRION INC.-2020JP027642

PATIENT

DRUGS (13)
  1. INFLIXIMAB-DYYB [Suspect]
     Active Substance: INFLIXIMAB-DYYB
     Indication: Crohn^s disease
     Dosage: 350 MG (WEIGHT: 70.0 KG)
     Route: 041
     Dates: start: 20181013, end: 20181013
  2. INFLIXIMAB-DYYB [Suspect]
     Active Substance: INFLIXIMAB-DYYB
     Dosage: 355 MG (WEIGHT: 71 KG)
     Route: 041
     Dates: start: 20181215, end: 20181215
  3. INFLIXIMAB-DYYB [Suspect]
     Active Substance: INFLIXIMAB-DYYB
     Dosage: 350 MG (WEIGHT: 70 KG)
     Route: 041
     Dates: start: 20190223, end: 20190223
  4. INFLIXIMAB-DYYB [Suspect]
     Active Substance: INFLIXIMAB-DYYB
     Dosage: 355 MG (WEIGHT: 70.9 KG)
     Route: 041
     Dates: start: 20190411, end: 20190411
  5. INFLIXIMAB-DYYB [Suspect]
     Active Substance: INFLIXIMAB-DYYB
     Dosage: 350 MG (WEIGHT: 70.0 KG)
     Route: 041
     Dates: start: 20191012, end: 20191012
  6. INFLIXIMAB-DYYB [Suspect]
     Active Substance: INFLIXIMAB-DYYB
     Dosage: 350 MG (WEIGHT: 70 KG)
     Route: 041
     Dates: start: 20201017, end: 20201017
  7. INFLIXIMAB-DYYB [Suspect]
     Active Substance: INFLIXIMAB-DYYB
     Dosage: 355 MG (WEIGHT: 71.3 KG)
     Route: 041
     Dates: start: 20211009, end: 20211009
  8. INFLIXIMAB-DYYB [Suspect]
     Active Substance: INFLIXIMAB-DYYB
     Dosage: 360 MG (WEIGHT: 72.3 KG)
     Route: 041
     Dates: start: 20221011, end: 20221011
  9. MESALAMINE [Concomitant]
     Active Substance: MESALAMINE
     Dosage: 3000 MG, DAILY
     Route: 048
  10. BUDESONIDE [Concomitant]
     Active Substance: BUDESONIDE
     Indication: Crohn^s disease
     Dosage: 9 MG, DAILY
     Route: 048
     Dates: start: 20190122, end: 20190313
  11. MERCAPTOPURINE [Concomitant]
     Active Substance: MERCAPTOPURINE
     Indication: Crohn^s disease
     Dosage: 10 MG, DAILY
     Route: 048
     Dates: start: 20190223, end: 20190313
  12. MERCAPTOPURINE [Concomitant]
     Active Substance: MERCAPTOPURINE
     Dosage: 20 MG, DAILY
     Route: 048
     Dates: start: 20190314, end: 20190410
  13. MERCAPTOPURINE [Concomitant]
     Active Substance: MERCAPTOPURINE
     Dosage: 10 MG, DAILY
     Route: 048
     Dates: start: 20190411, end: 20220311

REACTIONS (11)
  - Sudden hearing loss [Recovered/Resolved]
  - COVID-19 [Recovered/Resolved]
  - Cholecystitis [Recovered/Resolved]
  - Colitis [Recovered/Resolved]
  - Zinc deficiency [Not Recovered/Not Resolved]
  - Vitamin B12 deficiency [Not Recovered/Not Resolved]
  - Influenza [Recovered/Resolved]
  - Nausea [Recovered/Resolved]
  - Off label use [Unknown]
  - Product use issue [Unknown]
  - Underdose [Unknown]

NARRATIVE: CASE EVENT DATE: 20190115
